FAERS Safety Report 19679215 (Version 3)
Quarter: 2021Q3

REPORT INFORMATION
  Report Type: Spontaneous
  Country: US (occurrence: US)
  Receive Date: 20210810
  Receipt Date: 20210921
  Transmission Date: 20211014
  Serious: Yes (Other)
  Sender: FDA-Public Use
  Company Number: US-COOPERSURGICAL, INC.-US-2021CPS002204

PATIENT
  Age: 50 Year
  Sex: Female
  Weight: 68.48 kg

DRUGS (1)
  1. PARAGARD T 380A [Suspect]
     Active Substance: COPPER
     Indication: CONTRACEPTION
     Dosage: UNK
     Route: 015
     Dates: start: 2006, end: 20210714

REACTIONS (6)
  - Complication of device removal [Recovered/Resolved]
  - Uterine leiomyoma [Not Recovered/Not Resolved]
  - Device breakage [Recovered/Resolved]
  - Menopause [Unknown]
  - Foreign body in reproductive tract [Recovered/Resolved]
  - Device use issue [Unknown]

NARRATIVE: CASE EVENT DATE: 20210429
